FAERS Safety Report 7742713-X (Version None)
Quarter: 2011Q3

REPORT INFORMATION
  Report Type: 
  Country: None (occurrence: None)
  Receive Date: 20110912
  Receipt Date: 20110908
  Transmission Date: 20111222
  Serious: Yes (Other)
  Sender: FDA-Public Use
  Company Number: DK-BRISTOL-MYERS SQUIBB COMPANY-15785918

PATIENT
  Age: 17 Year
  Sex: Female

DRUGS (10)
  1. ONCOVIN [Suspect]
     Indication: HODGKIN'S DISEASE
     Dosage: INFUSION DATES 08,15,22MAY;5,12,19JUN;03,10,31JUL;07,28AUG;04,11,25SEP AND 03OCT.
     Route: 040
     Dates: start: 20060508, end: 20061003
  2. CYCLOPHOSPHAMIDE [Suspect]
     Indication: HODGKIN'S DISEASE
     Dosage: 3JUL06-4SEP06 750 MG IV; 25SEP06-3OCT06 775 MG 1 HR INFUSION ON 03, 10, 31JUL; 07, 28AUG AND 03OCT
     Route: 042
     Dates: start: 20060703, end: 20061003
  3. PREDNISONE [Suspect]
     Indication: HODGKIN'S DISEASE
     Dosage: 08MAY2006 TO 03JUL2006 35+25+25 MG 03JUL2006 TO 28AUG2006 20 MG X 3
     Route: 048
     Dates: start: 20060508, end: 20061010
  4. MESNA [Suspect]
     Indication: HODGKIN'S DISEASE
     Dosage: 3JUL06-4SEP06 200 MG IV; 25SEP06-3OCT06 230 MG 03, 10, 31JUL; 07, 28AUG AND 03OCT
     Route: 042
     Dates: start: 20060703, end: 20061003
  5. ADRIAMYCIN PFS [Suspect]
     Indication: HODGKIN'S DISEASE
     Dosage: ON 22MAY,5+19JUN 4HR INFUSION
     Route: 042
     Dates: start: 20060508, end: 20060619
  6. DEXTROSE [Concomitant]
     Dosage: GLUCOSE MONOHYDRATE THE PATIENT ALSO RECEIVED DARROW GLUCOSE SAD HYDRATION IN 24 HRS HOURS
  7. POTASSIUM CHLORIDE [Concomitant]
  8. NATRIUMFLUORID [Concomitant]
  9. ETOPOSIDE [Suspect]
     Indication: HODGKIN'S DISEASE
     Dosage: GIVEN ON MAY8,9,10,11,12 AND JUN5,6,7,8,9 2HR INFUSION
     Route: 042
     Dates: start: 20060508, end: 20060609
  10. PROCARBAZINE HYDROCHLORIDE [Suspect]
     Indication: HODGKIN'S DISEASE
     Dosage: NATULANAR
     Route: 048
     Dates: start: 20060703, end: 20061010

REACTIONS (8)
  - FATIGUE [None]
  - LYMPHADENOPATHY [None]
  - OSTEONECROSIS [None]
  - INTERVERTEBRAL DISC PROTRUSION [None]
  - ARTHRALGIA [None]
  - PAIN IN EXTREMITY [None]
  - PERTUSSIS [None]
  - BACK PAIN [None]
